FAERS Safety Report 10971548 (Version 1)
Quarter: 2015Q1

REPORT INFORMATION
  Report Type: Spontaneous
  Country: IT (occurrence: IT)
  Receive Date: 20150331
  Receipt Date: 20150331
  Transmission Date: 20150721
  Serious: Yes (Other)
  Sender: FDA-Public Use
  Company Number: IT-WATSON-2015-06514

PATIENT
  Age: 54 Year
  Sex: Female

DRUGS (3)
  1. CEFIXIME (UNKNOWN) [Suspect]
     Active Substance: CEFIXIME
     Indication: BRONCHITIS
     Dosage: 400 MG, DAILY
     Route: 048
     Dates: start: 20150304, end: 20150313
  2. CIPROFLOXACIN HYDROCHLORIDE (UNKNOWN) [Suspect]
     Active Substance: CIPROFLOXACIN HYDROCHLORIDE
     Indication: BRONCHITIS
     Dosage: 500 MG, DAILY
     Route: 048
     Dates: start: 20150309, end: 20150313
  3. CLARITHROMYCIN. [Suspect]
     Active Substance: CLARITHROMYCIN
     Indication: BRONCHITIS
     Dosage: 1 G, DAILY
     Route: 048
     Dates: start: 20150309, end: 20150313

REACTIONS (2)
  - Bronchitis [Recovering/Resolving]
  - Drug ineffective [Recovering/Resolving]

NARRATIVE: CASE EVENT DATE: 20150313
